FAERS Safety Report 12249126 (Version 1)
Quarter: 2016Q2

REPORT INFORMATION
  Report Type: Report from Study
  Country: JP (occurrence: JP)
  Receive Date: 20160408
  Receipt Date: 20160408
  Transmission Date: 20160815
  Serious: Yes (Other)
  Sender: FDA-Public Use
  Company Number: JP-MYLANLABS-2016M1014410

PATIENT

DRUGS (1)
  1. GEMCITABINE [Suspect]
     Active Substance: GEMCITABINE\GEMCITABINE HYDROCHLORIDE
     Indication: BILE DUCT CANCER
     Dosage: 1000 MG/M2 OVER THE COURSE OF 30 MINUTES ON DAYS 1, 8, AND 15 (28-DAY CYCLE)
     Route: 041

REACTIONS (1)
  - Cholangitis [Recovered/Resolved]
